FAERS Safety Report 18601697 (Version 2)
Quarter: 2021Q1

REPORT INFORMATION
  Report Type: Report from Study
  Country: BR (occurrence: BR)
  Receive Date: 20201210
  Receipt Date: 20210111
  Transmission Date: 20210419
  Serious: Yes (Hospitalization, Other)
  Sender: FDA-Public Use
  Company Number: NVSC2020BR327858

PATIENT
  Age: 27 Year
  Sex: Female

DRUGS (2)
  1. TASIGNA [Suspect]
     Active Substance: NILOTINIB
     Indication: CHRONIC MYELOID LEUKAEMIA
     Dosage: 2 DF, BID
     Route: 065
     Dates: start: 20201026
  2. TASIGNA [Suspect]
     Active Substance: NILOTINIB
     Dosage: 2 DF, BID
     Route: 065
     Dates: start: 20201027

REACTIONS (10)
  - Seizure [Unknown]
  - Chronic myeloid leukaemia [Unknown]
  - Malignant neoplasm progression [Unknown]
  - Malaise [Unknown]
  - Syncope [Unknown]
  - Pain [Unknown]
  - Blood pressure increased [Unknown]
  - Arthralgia [Unknown]
  - Illness [Unknown]
  - Transformation to acute myeloid leukaemia [Unknown]

NARRATIVE: CASE EVENT DATE: 20201129
